FAERS Safety Report 14939430 (Version 1)
Quarter: 2018Q2

REPORT INFORMATION
  Report Type: Report from Study
  Country: JP (occurrence: JP)
  Receive Date: 20180525
  Receipt Date: 20180525
  Transmission Date: 20180711
  Serious: Yes (Hospitalization)
  Sender: FDA-Public Use
  Company Number: JP-CELLTRION INC.-2018JP019914

PATIENT

DRUGS (15)
  1. INFLIXIMAB BS FOR I.V. INFUSION100 MG [NK] [Suspect]
     Active Substance: INFLIXIMAB
     Dosage: 400 MG/BODY/DAY
     Route: 042
     Dates: start: 20160818, end: 20160818
  2. INFLIXIMAB BS FOR I.V. INFUSION100 MG [NK] [Suspect]
     Active Substance: INFLIXIMAB
     Dosage: 400 MG/BODY/DAY
     Route: 042
     Dates: start: 20160913, end: 20160913
  3. SENNA [Concomitant]
     Active Substance: SENNA LEAF\SENNOSIDES\SENNOSIDES A AND B
     Indication: CONSTIPATION PROPHYLAXIS
     Dosage: 1 G/DAY
  4. LANSOPRAZOLE. [Concomitant]
     Active Substance: LANSOPRAZOLE
     Indication: GASTRITIS PROPHYLAXIS
     Dosage: 15 MG/DAY
     Dates: start: 20080407
  5. DAIKENCHUTO [Concomitant]
     Active Substance: HERBALS
     Indication: GASTRITIS PROPHYLAXIS
     Dosage: 6 DF/DAY
     Dates: start: 20120910
  6. DOMPERIDONE [Concomitant]
     Active Substance: DOMPERIDONE
     Indication: PROPHYLAXIS
     Dosage: 30 MG/DAY
     Dates: start: 20150610
  7. INFLIXIMAB BS FOR I.V. INFUSION100 MG [NK] [Suspect]
     Active Substance: INFLIXIMAB
     Dosage: 400 MG/BODY/DAY
     Route: 042
     Dates: start: 20161109, end: 20161109
  8. INFLIXIMAB BS FOR I.V. INFUSION100 MG [NK] [Suspect]
     Active Substance: INFLIXIMAB
     Dosage: 400 MG/BODY/DAY
     Route: 042
     Dates: start: 20170104, end: 20170104
  9. ELENTAL [Concomitant]
     Active Substance: AMINO ACIDS\CARBOHYDRATES\MINERALS\SOYBEAN OIL\VITAMINS
     Indication: CROHN^S DISEASE
     Dosage: 1200 ML/DAY
  10. INFLIXIMAB BS FOR I.V. INFUSION100 MG [NK] [Suspect]
     Active Substance: INFLIXIMAB
     Dosage: 400 MG/BODY/DAY
     Route: 042
     Dates: start: 20170830, end: 20170830
  11. INFLIXIMAB BS FOR I.V. INFUSION100 MG [NK] [Suspect]
     Active Substance: INFLIXIMAB
     Dosage: 400 MG/BODY/DAY
     Route: 042
     Dates: start: 20170308, end: 21070308
  12. INFLIXIMAB BS FOR I.V. INFUSION100 MG [NK] [Suspect]
     Active Substance: INFLIXIMAB
     Dosage: 400 MG/BODY/DAY
     Route: 042
     Dates: start: 20170510, end: 20170510
  13. INFLIXIMAB BS FOR I.V. INFUSION100 MG [NK] [Suspect]
     Active Substance: INFLIXIMAB
     Dosage: 400 MG/BODY/DAY
     Route: 042
     Dates: start: 20170705, end: 20170705
  14. MAGMITT [Concomitant]
     Active Substance: MAGNESIUM OXIDE
     Indication: CONSTIPATION PROPHYLAXIS
     Dosage: 1980 MG/DAY
     Dates: start: 20150106
  15. INFLIXIMAB BS FOR I.V. INFUSION100 MG [NK] [Suspect]
     Active Substance: INFLIXIMAB
     Indication: CROHN^S DISEASE
     Dosage: 400 MG/BODY/DAY
     Route: 042
     Dates: start: 20160804, end: 20160804

REACTIONS (2)
  - Intestinal stenosis [Recovered/Resolved]
  - Inappropriate schedule of drug administration [Unknown]

NARRATIVE: CASE EVENT DATE: 20170510
